FAERS Safety Report 24797484 (Version 2)
Quarter: 2025Q1

REPORT INFORMATION
  Report Type: Spontaneous
  Country: CH (occurrence: CH)
  Receive Date: 20250102
  Receipt Date: 20250116
  Transmission Date: 20250409
  Serious: Yes (Other)
  Sender: TEVA
  Company Number: CH-TEVA-VS-3280677

PATIENT
  Age: 38 Year
  Sex: Female

DRUGS (2)
  1. CISPLATIN [Suspect]
     Active Substance: CISPLATIN
     Indication: Clear cell carcinoma of cervix
     Route: 065
  2. NIVOLUMAB [Suspect]
     Active Substance: NIVOLUMAB
     Indication: Clear cell carcinoma of cervix
     Route: 065

REACTIONS (3)
  - Autoimmune thyroiditis [Unknown]
  - Thyroiditis [Unknown]
  - Pollakiuria [Unknown]
